FAERS Safety Report 11190955 (Version 1)
Quarter: 2015Q2

REPORT INFORMATION
  Report Type: Spontaneous
  Country: SG (occurrence: SG)
  Receive Date: 20150615
  Receipt Date: 20150615
  Transmission Date: 20150821
  Serious: Yes (Hospitalization)
  Sender: FDA-Public Use
  Company Number: SG-BAYER-2015-319331

PATIENT
  Sex: Male

DRUGS (1)
  1. ASPIRIN CARDIO [Suspect]
     Active Substance: ASPIRIN
     Dosage: UNK

REACTIONS (3)
  - Foreign body [None]
  - Gastrointestinal infection [None]
  - Product use issue [None]

NARRATIVE: CASE EVENT DATE: 20150608
